FAERS Safety Report 10755340 (Version 1)
Quarter: 2015Q1

REPORT INFORMATION
  Report Type: Spontaneous
  Country: US (occurrence: US)
  Receive Date: 20150202
  Receipt Date: 20150202
  Transmission Date: 20150721
  Serious: Yes (Other)
  Sender: FDA-Public Use
  Company Number: US-PFIZER INC-2015043554

PATIENT
  Age: 61 Year
  Sex: Male
  Weight: 95.24 kg

DRUGS (3)
  1. FENTANYL. [Concomitant]
     Active Substance: FENTANYL
     Indication: BACK PAIN
     Dosage: UNK
  2. LYRICA [Suspect]
     Active Substance: PREGABALIN
     Indication: PAIN IN EXTREMITY
  3. LYRICA [Suspect]
     Active Substance: PREGABALIN
     Indication: NEUROPATHY PERIPHERAL
     Dosage: 75 MG, 2X/DAY

REACTIONS (3)
  - Eye pain [Unknown]
  - Blindness unilateral [Unknown]
  - Cataract [Unknown]

NARRATIVE: CASE EVENT DATE: 2009
